FAERS Safety Report 5407411-6 (Version None)
Quarter: 2007Q3

REPORT INFORMATION
  Report Type: 
  Country: None (occurrence: None)
  Receive Date: 20070807
  Receipt Date: 20070801
  Transmission Date: 20080115
  Serious: Yes (Hospitalization, Other)
  Sender: FDA-Public Use
  Company Number: US-ELI_LILLY_AND_COMPANY-US200704005367

PATIENT
  Age: 45 Year
  Sex: Female

DRUGS (1)
  1. GEMZAR [Suspect]
     Indication: BREAST CANCER
     Dosage: 800 MG/M2, OTHER
     Dates: start: 20060101

REACTIONS (4)
  - HAEMOLYTIC URAEMIC SYNDROME [None]
  - PLEURAL EFFUSION [None]
  - PULMONARY OEDEMA [None]
  - RENAL FAILURE CHRONIC [None]
